FAERS Safety Report 9342941 (Version 1)
Quarter: 2013Q2

REPORT INFORMATION
  Report Type: Spontaneous
  Country: FR (occurrence: FR)
  Receive Date: 20130611
  Receipt Date: 20130611
  Transmission Date: 20140414
  Serious: Yes (Hospitalization)
  Sender: FDA-Public Use
  Company Number: FR-LUNDBECK-DKLU1091538

PATIENT
  Age: 75 Year
  Sex: Male

DRUGS (2)
  1. ONFI [Suspect]
     Indication: EPILEPSY
     Route: 048
     Dates: start: 201101, end: 201102
  2. TEGRETOL [Suspect]
     Indication: EPILEPSY
     Route: 048
     Dates: start: 201101

REACTIONS (2)
  - Fall [Recovered/Resolved]
  - Sedation [Recovered/Resolved]
